FAERS Safety Report 21110795 (Version 2)
Quarter: 2022Q3

REPORT INFORMATION
  Report Type: Spontaneous
  Country: FR (occurrence: FR)
  Receive Date: 20220721
  Receipt Date: 20220812
  Transmission Date: 20221027
  Serious: Yes (Death)
  Sender: FDA-Public Use
  Company Number: None

PATIENT
  Age: 60 Year
  Sex: Female

DRUGS (6)
  1. ZOLPIDEM [Suspect]
     Active Substance: ZOLPIDEM TARTRATE
     Indication: Depression
     Dosage: UNK
     Route: 065
     Dates: end: 20220121
  2. SPIKEVAX [Suspect]
     Active Substance: ELASOMERAN
     Indication: COVID-19 immunisation
     Dosage: 1 DOSAGE FORM, TOTAL (R1)(MRNA (NUCLEOSIDE MODIFIED) VACCINE)UNKNOWN DELTOID
     Route: 030
     Dates: start: 20211229, end: 20211229
  3. CYAMEMAZINE [Suspect]
     Active Substance: CYAMEMAZINE
     Indication: Depression
     Dosage: UNK
     Route: 065
     Dates: end: 20220121
  4. MOVICOL [Concomitant]
     Active Substance: POLYETHYLENE GLYCOL 3350\POTASSIUM CHLORIDE\SODIUM BICARBONATE\SODIUM CHLORIDE
     Dosage: UNK
     Route: 065
  5. COMIRNATY [Concomitant]
     Active Substance: TOZINAMERAN
     Dosage: D2, 30 MICROGRAMS/DOSE
     Route: 065
     Dates: start: 20210614, end: 20210614
  6. COMIRNATY [Concomitant]
     Active Substance: TOZINAMERAN
     Dosage: D1
     Route: 065
     Dates: start: 202105, end: 202105

REACTIONS (1)
  - Death [Fatal]

NARRATIVE: CASE EVENT DATE: 20220121
